FAERS Safety Report 4883044-5 (Version None)
Quarter: 2006Q1

REPORT INFORMATION
  Report Type: 
  Country: None (occurrence: None)
  Receive Date: 20060118
  Receipt Date: 20060106
  Transmission Date: 20060701
  Serious: Yes (Hospitalization)
  Sender: FDA-Public Use
  Company Number: JP-JNJFOC-20060102097

PATIENT
  Sex: Male

DRUGS (7)
  1. LEUSTATIN [Suspect]
     Route: 042
  2. MITOXANTRONE HYDROCHLORIDE [Suspect]
     Route: 042
  3. DEXAMETHASONE TAB [Suspect]
     Dosage: DOSE NOT SPECIFIED
     Route: 048
  4. OMEPRAZOLE [Concomitant]
     Indication: REFLUX OESOPHAGITIS
     Route: 048
  5. SULFAMETHOXAZOLE + TRIMETHOPRIM [Concomitant]
     Route: 048
  6. SULFAMETHOXAZOLE + TRIMETHOPRIM [Concomitant]
     Indication: BRONCHITIS
     Route: 048
  7. GRANISETRON  HCL [Concomitant]
     Route: 042

REACTIONS (2)
  - DIVERTICULITIS [None]
  - PERITONITIS [None]
